FAERS Safety Report 22055967 (Version 1)
Quarter: 2023Q1

REPORT INFORMATION
  Report Type: Spontaneous
  Country: CA (occurrence: CA)
  Receive Date: 20230302
  Receipt Date: 20230302
  Transmission Date: 20230417
  Serious: Yes (Other)
  Sender: FDA-Public Use
  Company Number: CA-PFIZER INC-202200013438

PATIENT
  Age: 53 Year
  Sex: Male

DRUGS (7)
  1. METHOTREXATE SODIUM [Suspect]
     Active Substance: METHOTREXATE SODIUM
     Dosage: 25 MG, DOSAGE NOT AVAILABLE
     Route: 065
     Dates: start: 2016
  2. PREDNISONE [Suspect]
     Active Substance: PREDNISONE
     Dosage: 30 MG, DOSAGE NOT AVAILABLE
     Route: 065
     Dates: start: 2012
  3. FOLIC ACID [Concomitant]
     Active Substance: FOLIC ACID
     Dosage: 1 DF, DOSE UNK DOSAGE NOT AVAILABLE
     Route: 065
  4. RITUXIMAB [Concomitant]
     Active Substance: RITUXIMAB
     Indication: Granulomatosis with polyangiitis
     Dosage: 880 MG WEEKLY EVERY WEEK FOR 4 WEEKS FOR INDUCTION
     Route: 042
     Dates: start: 20220308, end: 20220329
  5. RITUXIMAB [Concomitant]
     Active Substance: RITUXIMAB
     Dosage: 500 MG EVERY 6 MONTHS MAINTENANCE
     Route: 042
     Dates: start: 20220913
  6. CALCIUM [Concomitant]
     Active Substance: CALCIUM
     Dosage: 1 DF DOSAGE NOT AVAILABLE
     Route: 065
  7. CHOLECALCIFEROL [Concomitant]
     Active Substance: CHOLECALCIFEROL
     Dosage: 1 DF DOSAGE NOT AVAILABLE
     Route: 065

REACTIONS (4)
  - Aortitis [Unknown]
  - Drug ineffective [Unknown]
  - Condition aggravated [Unknown]
  - Sinusitis [Unknown]

NARRATIVE: CASE EVENT DATE: 20211001
